FAERS Safety Report 5596125-8 (Version None)
Quarter: 2008Q1

REPORT INFORMATION
  Report Type: 
  Country: None (occurrence: None)
  Receive Date: 20080118
  Receipt Date: 20080111
  Transmission Date: 20080703
  Serious: Yes (Hospitalization)
  Sender: FDA-Public Use
  Company Number: JP-BOEHRINGER INGELHEIM PHARMACEUTICALS, INC.-2008-BP-00300NB

PATIENT
  Age: 79 Year
  Sex: Male

DRUGS (6)
  1. SPIRIVA [Suspect]
     Indication: CHRONIC OBSTRUCTIVE PULMONARY DISEASE
     Route: 055
     Dates: start: 20060203, end: 20061228
  2. CLARITHROMYCIN [Concomitant]
     Indication: PRODUCTIVE COUGH
     Route: 048
     Dates: start: 20071207, end: 20071208
  3. KOLANTYL [Concomitant]
     Route: 048
     Dates: end: 20071228
  4. ADALAT [Concomitant]
     Route: 048
  5. HOKUNALIN [Concomitant]
     Route: 062
  6. FLUTIDE [Concomitant]
     Route: 055

REACTIONS (3)
  - FEELING ABNORMAL [None]
  - PRODUCTIVE COUGH [None]
  - URINARY RETENTION [None]
